FAERS Safety Report 6305622-9 (Version None)
Quarter: 2009Q3

REPORT INFORMATION
  Report Type: 
  Country: None (occurrence: None)
  Receive Date: 20090806
  Receipt Date: 20090723
  Transmission Date: 20100115
  Serious: Yes (Other)
  Sender: FDA-Public Use
  Company Number: 066-50794-09071654

PATIENT

DRUGS (1)
  1. VIDAZA [Suspect]
     Indication: MYELODYSPLASTIC SYNDROME
     Dosage: 75 MG/M2, FOR 7 DAYS EVERY 28 DAYS, SUBCUTANEOUS
     Route: 058
     Dates: start: 20040701, end: 20081201

REACTIONS (7)
  - BONE MARROW FAILURE [None]
  - INJECTION SITE REACTION [None]
  - RESPIRATORY TRACT INFECTION [None]
  - SEPSIS [None]
  - SKIN REACTION [None]
  - SOFT TISSUE INFECTION [None]
  - TUBERCULOSIS [None]
